FAERS Safety Report 20947358 (Version 1)
Quarter: 2022Q2

REPORT INFORMATION
  Report Type: Report from Study
  Country: ES (occurrence: ES)
  Receive Date: 20220610
  Receipt Date: 20220610
  Transmission Date: 20220721
  Serious: Yes (Other)
  Sender: FDA-Public Use
  Company Number: None

PATIENT

DRUGS (14)
  1. OPICAPONE [Suspect]
     Active Substance: OPICAPONE
     Indication: Parkinson^s disease
     Dosage: 50 MILLIGRAM, QD
     Route: 048
     Dates: start: 20220429, end: 20220504
  2. CARBIDOPA\LEVODOPA [Suspect]
     Active Substance: CARBIDOPA\LEVODOPA
     Indication: Parkinson^s disease
     Dosage: 37.5 MILLIGRAM, 1X / DAY (2.5/ 2.5/ 2.5/ 27.5/ 2.5)
     Route: 048
     Dates: start: 20220303
  3. XADAGO [Concomitant]
     Active Substance: SAFINAMIDE MESYLATE
     Dosage: 100 MILLIGRAM, 1X / DAY
     Route: 048
     Dates: start: 20210521
  4. MIRTAZAPINA NORMON [Concomitant]
     Dosage: 7.5 MILLIGRAM, 1X / DAY
     Route: 048
     Dates: start: 20200415
  5. PALEXIA [Concomitant]
     Active Substance: TAPENTADOL HYDROCHLORIDE
     Dosage: 100 MILLIGRAM, 2X / DAY (BREAKFAST AND DINNER)
     Route: 048
     Dates: start: 20171201
  6. PALEXIA [Concomitant]
     Active Substance: TAPENTADOL HYDROCHLORIDE
     Dosage: 25 MILLIGRAM, 1X / DAY
     Route: 048
     Dates: start: 20220221
  7. LOSARTAN STADA [Concomitant]
     Dosage: 50 MILLIGRAM, 1X / DAY
     Route: 048
     Dates: start: 20120425
  8. PREGABALINA NORMON [Concomitant]
     Dosage: 50 MILLIGRAM, 1X / DAY
     Route: 048
     Dates: start: 20200612
  9. DULOXETINA NORMON [Concomitant]
     Dosage: 60 MILLIGRAM, 1X / DAY
     Route: 048
     Dates: start: 20161116
  10. ALPRAZOLAM CINFA [Concomitant]
     Dosage: 0.5 MILLIGRAM, 1X / DAY
     Route: 048
     Dates: start: 20120408
  11. PARACETAMOL KERN PHARMA [Concomitant]
     Dosage: 1 GRAM, 3X / DAY (EVERY 8 HOURS)
     Route: 048
     Dates: start: 20160408
  12. LORMETAZEPAM [Concomitant]
     Active Substance: LORMETAZEPAM
     Dosage: 2 MILLIGRAM, 1X / DAY
     Route: 048
     Dates: start: 20120421
  13. PRAMIPEXOLE [Concomitant]
     Active Substance: PRAMIPEXOLE
     Dosage: 0.52 MILLIGRAM, 1X / DAY
     Route: 048
     Dates: start: 20201023
  14. PANTOPRAZOLE SODIUM [Concomitant]
     Active Substance: PANTOPRAZOLE SODIUM
     Dosage: UNK, 1X / DAY
     Route: 048
     Dates: start: 20160622

REACTIONS (3)
  - Abdominal pain [Recovered/Resolved]
  - Vomiting [Recovered/Resolved]
  - Dyskinesia [Recovered/Resolved]

NARRATIVE: CASE EVENT DATE: 20220504
